FAERS Safety Report 14969511 (Version 5)
Quarter: 2019Q2

REPORT INFORMATION
  Report Type: Report from Study
  Country: ES (occurrence: ES)
  Receive Date: 20180604
  Receipt Date: 20190430
  Transmission Date: 20190711
  Serious: Yes (Hospitalization, Other)
  Sender: FDA-Public Use
  Company Number: ES-PFIZER INC-2018221527

PATIENT
  Age: 66 Year
  Sex: Female

DRUGS (9)
  1. PACLITAXEL. [Suspect]
     Active Substance: PACLITAXEL
     Indication: BREAST CANCER
     Dosage: 80 MG/M2, WEEKLY
     Route: 042
     Dates: start: 20160415
  2. PREDNISONE. [Concomitant]
     Active Substance: PREDNISONE
     Dosage: 30 MG, 2X/DAY
     Route: 048
     Dates: start: 20160512, end: 20160523
  3. LEVOFLOXACIN. [Concomitant]
     Active Substance: LEVOFLOXACIN
     Dosage: 500 MG, 1X/DAY
     Route: 065
     Dates: start: 20160512, end: 20160516
  4. BEVACIZUMAB. [Suspect]
     Active Substance: BEVACIZUMAB
     Indication: BREAST CANCER
     Dosage: 10 MG/KG, CYCLIC (EVERY 2 WEEKS)
     Dates: start: 20160415
  5. LEVOTHYROXINE. [Concomitant]
     Active Substance: LEVOTHYROXINE
     Indication: HYPOTHYROIDISM
     Dosage: UNK
     Route: 048
  6. BEVACIZUMAB. [Suspect]
     Active Substance: BEVACIZUMAB
     Dosage: 10 MG/KG, CYCLIC (EVERY 2 WEEKS)
     Route: 042
     Dates: start: 20160830
  7. PREDNISONE. [Concomitant]
     Active Substance: PREDNISONE
     Dosage: 15 MG, 1X/DAY
     Route: 048
     Dates: start: 20160529, end: 20160602
  8. PACLITAXEL. [Suspect]
     Active Substance: PACLITAXEL
     Dosage: 80 MG/M2, WEEKLY
     Route: 042
     Dates: start: 20161024
  9. PREDNISONE. [Concomitant]
     Active Substance: PREDNISONE
     Dosage: 30 MG, 1X/DAY
     Route: 048
     Dates: start: 20160524, end: 20160528

REACTIONS (10)
  - Dyspnoea [Recovered/Resolved]
  - Paraesthesia [Recovered/Resolved]
  - Hypertension [Recovered/Resolved]
  - Epistaxis [Recovered/Resolved]
  - Stomatitis [Recovered/Resolved]
  - Neutropenia [Recovered/Resolved]
  - Fatigue [Recovered/Resolved]
  - Infusion related reaction [Recovered/Resolved]
  - Nail toxicity [Recovered/Resolved]
  - Nail toxicity [Recovering/Resolving]

NARRATIVE: CASE EVENT DATE: 20160512
